FAERS Safety Report 15510474 (Version 1)
Quarter: 2018Q4

REPORT INFORMATION
  Report Type: Spontaneous
  Country: None (occurrence: AF)
  Receive Date: 20181016
  Receipt Date: 20181016
  Transmission Date: 20190205
  Serious: No
  Sender: FDA-Public Use
  Company Number: AF-PRESTIGE BRANDS -2056245

PATIENT

DRUGS (1)
  1. MONISTAT 3 COMBINATION PACK [Suspect]
     Active Substance: MICONAZOLE NITRATE

REACTIONS (2)
  - Product prescribing error [None]
  - Micturition urgency [None]
